FAERS Safety Report 14368071 (Version 1)
Quarter: 2018Q1

REPORT INFORMATION
  Report Type: Spontaneous
  Country: CA (occurrence: CA)
  Receive Date: 20180109
  Receipt Date: 20180109
  Transmission Date: 20180509
  Serious: Yes (Life-Threatening, Disabling)
  Sender: FDA-Public Use
  Company Number: None

PATIENT
  Age: 28 Year
  Sex: Male
  Weight: 72 kg

DRUGS (1)
  1. HYDROCORTISONE. [Suspect]
     Active Substance: HYDROCORTISONE
     Indication: ECZEMA
     Route: 061

REACTIONS (8)
  - Drug withdrawal syndrome [None]
  - Erythema [None]
  - Pruritus [None]
  - Secretion discharge [None]
  - Staphylococcal infection [None]
  - Skin fissures [None]
  - Dry skin [None]
  - Skin burning sensation [None]

NARRATIVE: CASE EVENT DATE: 20160301
